FAERS Safety Report 4354066-8 (Version None)
Quarter: 2004Q2

REPORT INFORMATION
  Report Type: 
  Country: None (occurrence: None)
  Receive Date: 20040503
  Receipt Date: 20040420
  Transmission Date: 20050107
  Serious: Yes (Hospitalization)
  Sender: FDA-Public Use
  Company Number: FR-JNJFOC-20040404511

PATIENT
  Age: 35 Year
  Sex: Female

DRUGS (2)
  1. TRAMADOL HCL [Suspect]
     Indication: ARTHRALGIA
     Dosage: 100 MG, 2 IN 1 DAY, ORAL
     Route: 048
     Dates: start: 20040311, end: 20040311
  2. BIOPROFENID (BISMUTH SUBCARBONATE) [Concomitant]

REACTIONS (5)
  - DYSARTHRIA [None]
  - EUPHORIC MOOD [None]
  - FEELING DRUNK [None]
  - PRURITUS [None]
  - TREMOR [None]
